FAERS Safety Report 9297169 (Version 2)
Quarter: 2013Q3

REPORT INFORMATION
  Report Type: Spontaneous
  Country: PT (occurrence: PT)
  Receive Date: 20130520
  Receipt Date: 20130723
  Transmission Date: 20140515
  Serious: Yes (Other)
  Sender: FDA-Public Use
  Company Number: PT-009507513-1305PRT005212

PATIENT
  Age: 29 Year
  Sex: Female

DRUGS (1)
  1. IMPLANON [Suspect]
     Dosage: UNK
     Route: 059
     Dates: start: 20111130

REACTIONS (4)
  - Renal failure [Unknown]
  - Polymenorrhoea [Recovered/Resolved]
  - Menstruation delayed [Not Recovered/Not Resolved]
  - Menorrhagia [Unknown]
